FAERS Safety Report 10696317 (Version 11)
Quarter: 2015Q2

REPORT INFORMATION
  Report Type: Report from Study
  Country: AU (occurrence: AU)
  Receive Date: 20150107
  Receipt Date: 20150603
  Transmission Date: 20150821
  Serious: Yes (Death, Life-Threatening, Other)
  Sender: FDA-Public Use
  Company Number: PHHY2015AU000981

PATIENT
  Age: 18 Year
  Sex: Male
  Weight: 64 kg

DRUGS (9)
  1. PREDNISOLONE. [Suspect]
     Active Substance: PREDNISOLONE
     Dosage: INCREASED DOSE
     Route: 048
  2. STI571 [Suspect]
     Active Substance: IMATINIB MESYLATE
     Indication: GRAFT VERSUS HOST DISEASE IN SKIN
     Dosage: 400 MG, QD
     Route: 048
     Dates: start: 20150201
  3. BASILIXIMAB [Suspect]
     Active Substance: BASILIXIMAB
     Indication: GRAFT VERSUS HOST DISEASE IN LUNG
     Route: 065
  4. TACROLIMUS. [Suspect]
     Active Substance: TACROLIMUS
     Indication: GRAFT VERSUS HOST DISEASE IN LUNG
     Dosage: 0.7 MG, BID (MONTHS)
     Route: 065
  5. METHYLPREDISOLONE [Concomitant]
     Active Substance: METHYLPREDNISOLONE
     Indication: GRAFT VERSUS HOST DISEASE
     Dosage: 110 MG, DAILY (ESCALATED TO THIS DOSE ON 16 MAY 2015))
     Route: 065
  6. ETANERCEPT [Suspect]
     Active Substance: ETANERCEPT
     Indication: GRAFT VERSUS HOST DISEASE IN LUNG
     Route: 065
  7. PREDNISOLONE. [Suspect]
     Active Substance: PREDNISOLONE
     Indication: GRAFT VERSUS HOST DISEASE IN LUNG
     Dosage: 2 MG/KG, QD
     Route: 065
  8. CICLOSPORIN [Suspect]
     Active Substance: CYCLOSPORINE
     Indication: GRAFT VERSUS HOST DISEASE IN LUNG
     Route: 065
  9. SIROLIMUS. [Suspect]
     Active Substance: SIROLIMUS
     Indication: GRAFT VERSUS HOST DISEASE IN LUNG
     Route: 065

REACTIONS (13)
  - Graft versus host disease in skin [Fatal]
  - Mouth haemorrhage [Unknown]
  - Graft versus host disease in gastrointestinal tract [Recovering/Resolving]
  - Feeding disorder [Fatal]
  - Subcutaneous emphysema [Recovered/Resolved]
  - Obliterative bronchiolitis [Recovering/Resolving]
  - Exercise tolerance decreased [Recovering/Resolving]
  - Diarrhoea [Unknown]
  - Graft versus host disease in eye [Recovering/Resolving]
  - Lip haemorrhage [Fatal]
  - Pulmonary air leakage [Not Recovered/Not Resolved]
  - Viral upper respiratory tract infection [Recovered/Resolved]
  - General physical health deterioration [Unknown]

NARRATIVE: CASE EVENT DATE: 20141001
